FAERS Safety Report 18086983 (Version 1)
Quarter: 2020Q3

REPORT INFORMATION
  Report Type: Spontaneous
  Country: US (occurrence: US)
  Receive Date: 20200729
  Receipt Date: 20200729
  Transmission Date: 20201103
  Serious: No
  Sender: FDA-Public Use
  Company Number: None

PATIENT
  Sex: Female

DRUGS (1)
  1. CERETEC [Suspect]
     Active Substance: TECHNETIUM TC-99M EXAMETAZIME
     Indication: IMAGING PROCEDURE
     Route: 042
     Dates: start: 20200727, end: 20200729

REACTIONS (2)
  - Condition aggravated [None]
  - Rash [None]

NARRATIVE: CASE EVENT DATE: 20200727
